FAERS Safety Report 8396826-2 (Version None)
Quarter: 2012Q2

REPORT INFORMATION
  Report Type: 
  Country: None (occurrence: None)
  Receive Date: 20120530
  Receipt Date: 20120522
  Transmission Date: 20120825
  Serious: Yes (Other)
  Sender: FDA-Public Use
  Company Number: NZ-ABBOTT-12P-118-0938684-00

PATIENT

DRUGS (3)
  1. CYCLOSPORINE [Suspect]
     Indication: COLITIS ULCERATIVE
     Route: 042
  2. AZATHIOPRINE [Concomitant]
     Indication: PRODUCT USED FOR UNKNOWN INDICATION
  3. HYDROCORTISONE [Concomitant]
     Indication: COLITIS ULCERATIVE
     Route: 042

REACTIONS (5)
  - MUSCLE SPASMS [None]
  - VOMITING [None]
  - INCORRECT DOSE ADMINISTERED [None]
  - DRUG ADMINISTRATION ERROR [None]
  - NAUSEA [None]
